FAERS Safety Report 9950172 (Version 1)
Quarter: 2014Q1

REPORT INFORMATION
  Report Type: Spontaneous
  Country: US (occurrence: US)
  Receive Date: 20140304
  Receipt Date: 20140304
  Transmission Date: 20141002
  Serious: No
  Sender: FDA-Public Use
  Company Number: US-AMGEN-USASP2013080007

PATIENT
  Age: 60 Year
  Sex: Female
  Weight: 49.89 kg

DRUGS (7)
  1. ENBREL [Suspect]
     Indication: PRODUCT USED FOR UNKNOWN INDICATION
     Dosage: 50 MG, QWK
     Route: 058
  2. CELEXA                             /00582602/ [Concomitant]
     Dosage: 10 MG, UNK
  3. VITAMIN E                          /00110501/ [Concomitant]
     Dosage: 1000 UNIT, UNK
  4. FISH OIL [Concomitant]
     Dosage: UNK
  5. MULTIVITAMINS, PLAIN [Concomitant]
     Dosage: UNK
  6. VITAMIN D                          /00107901/ [Concomitant]
     Dosage: 1000 UNIT, UNK
  7. LEVOTHYROXIN [Concomitant]
     Dosage: 112 MUG, UNK

REACTIONS (3)
  - Headache [Unknown]
  - Anaemia [Unknown]
  - Injection site discolouration [Unknown]
